FAERS Safety Report 4318657-2 (Version None)
Quarter: 2004Q1

REPORT INFORMATION
  Report Type: 
  Country: None (occurrence: None)
  Receive Date: 20040315
  Receipt Date: 20040308
  Transmission Date: 20041129
  Serious: Yes (Hospitalization, Other)
  Sender: FDA-Public Use
  Company Number: 2004-02-0404

PATIENT
  Age: 61 Year
  Sex: Male
  Weight: 80 kg

DRUGS (14)
  1. INTRON A [Suspect]
     Indication: HEPATITIS C
     Dosage: SEE IMAGE
     Route: 030
     Dates: start: 20020117, end: 20020130
  2. INTRON A [Suspect]
     Indication: HEPATITIS C
     Dosage: SEE IMAGE
     Route: 030
     Dates: start: 20020117, end: 20020703
  3. INTRON A [Suspect]
     Indication: HEPATITIS C
     Dosage: SEE IMAGE
     Route: 030
     Dates: start: 20020201, end: 20020703
  4. REBETOL [Suspect]
     Indication: HEPATITIS C
     Dosage: SEE IMAGE
     Route: 048
     Dates: start: 20020117, end: 20020322
  5. REBETOL [Suspect]
     Indication: HEPATITIS C
     Dosage: SEE IMAGE
     Route: 048
     Dates: start: 20020117, end: 20020703
  6. REBETOL [Suspect]
     Indication: HEPATITIS C
     Dosage: SEE IMAGE
     Route: 048
     Dates: start: 20020323, end: 20020703
  7. PROHEPARUM [Concomitant]
  8. URSODEOXYCHOLIC ACID [Concomitant]
  9. DIGESTIVE ENZYME (NOS) [Concomitant]
  10. CIMETIDINE [Concomitant]
  11. DOMPERIDONE [Concomitant]
  12. METOCLOPRAMIDE TABLETS [Concomitant]
  13. LOXOPROFEN SODIUM TABLETS [Concomitant]
  14. SUCRALFATE [Concomitant]

REACTIONS (4)
  - ANOREXIA [None]
  - MALAISE [None]
  - NAUSEA [None]
  - WEIGHT DECREASED [None]
